FAERS Safety Report 9815268 (Version 2)
Quarter: 2014Q1

REPORT INFORMATION
  Report Type: Spontaneous
  Country: PL (occurrence: PL)
  Receive Date: 20140114
  Receipt Date: 20140213
  Transmission Date: 20141002
  Serious: Yes (Hospitalization)
  Sender: FDA-Public Use
  Company Number: PL-JNJFOC-20140103719

PATIENT
  Age: 63 Year
  Sex: Female
  Weight: 50 kg

DRUGS (8)
  1. REMICADE [Suspect]
     Indication: CROHN^S DISEASE
     Route: 042
     Dates: start: 20131230, end: 20131230
  2. REMICADE [Suspect]
     Indication: CROHN^S DISEASE
     Route: 042
     Dates: start: 2007
  3. CORHYDRON [Concomitant]
     Indication: PREMEDICATION
     Route: 042
  4. ASAMAX [Concomitant]
     Indication: CROHN^S DISEASE
     Dosage: CONTINUOUS THERAPY FOR SEVERAL YEARS
     Route: 065
  5. MADOPAR [Concomitant]
     Indication: PARKINSONISM
     Route: 065
  6. BETALOK ZOK [Concomitant]
     Indication: MYOCARDIAL ISCHAEMIA
     Dosage: EVERY MORNING
     Route: 065
  7. KALIPOZ [Concomitant]
     Indication: MYOCARDIAL ISCHAEMIA
     Dosage: EVERY MORNING
     Route: 065
  8. VIGANTOLETTEN [Concomitant]
     Indication: OSTEOPOROSIS
     Dosage: MORNING AND EVENING
     Route: 065

REACTIONS (5)
  - Rash pruritic [Recovered/Resolved]
  - Syncope [Recovered/Resolved]
  - Urticaria [Recovered/Resolved]
  - Infusion related reaction [Recovered/Resolved]
  - Functional gastrointestinal disorder [Recovered/Resolved]
